FAERS Safety Report 18151283 (Version 2)
Quarter: 2020Q3

REPORT INFORMATION
  Report Type: Spontaneous
  Country: LK (occurrence: LK)
  Receive Date: 20200814
  Receipt Date: 20200827
  Transmission Date: 20201103
  Serious: Yes (Other)
  Sender: FDA-Public Use
  Company Number: LK-ACCORD-195682

PATIENT
  Age: 75 Year
  Sex: Female
  Weight: 59 kg

DRUGS (4)
  1. ZOLEDRONIC ACID [Suspect]
     Active Substance: ZOLEDRONIC ACID
     Indication: OSTEOPOROSIS POSTMENOPAUSAL
     Dosage: FIRST DOSE OF ZOLEDRONIC ACID 4 MG IN 100 ML NORMAL SALINE OVER A PERIOD OF 15 MIN
     Route: 042
  2. SODIUM CHLORIDE. [Concomitant]
     Active Substance: SODIUM CHLORIDE
     Dosage: FIRST DOSE OF ZOLEDRONIC ACID 4 MG IN 100 ML NORMAL SALINE OVER A PERIOD OF 15 MIN
     Route: 042
  3. ERGOCALCIFEROL. [Concomitant]
     Active Substance: ERGOCALCIFEROL
     Indication: OSTEOPOROSIS POSTMENOPAUSAL
  4. CALCIUM [Concomitant]
     Active Substance: CALCIUM
     Indication: OSTEOPOROSIS POSTMENOPAUSAL

REACTIONS (2)
  - Iridocyclitis [Recovered/Resolved]
  - Conjunctival hyperaemia [Recovered/Resolved]
